FAERS Safety Report 19109331 (Version 3)
Quarter: 2021Q2

REPORT INFORMATION
  Report Type: Spontaneous
  Country: US (occurrence: US)
  Receive Date: 20210408
  Receipt Date: 20210628
  Transmission Date: 20210717
  Serious: No
  Sender: FDA-Public Use
  Company Number: US-TAKEDA-2021TUS020354

PATIENT
  Age: 73 Year
  Sex: Female
  Weight: 59 kg

DRUGS (5)
  1. ALUNBRIG [Suspect]
     Active Substance: BRIGATINIB
     Dosage: 180 MILLIGRAM, QD
     Route: 065
  2. CRESTOR [Concomitant]
     Active Substance: ROSUVASTATIN CALCIUM
     Indication: BLOOD CHOLESTEROL
     Dosage: UNK
  3. ALUNBRIG [Suspect]
     Active Substance: BRIGATINIB
     Dosage: 90 MILLIGRAM, QD
     Route: 065
  4. LOSARTAN. [Concomitant]
     Active Substance: LOSARTAN
     Indication: HYPERTENSION
     Dosage: UNK
  5. ALUNBRIG [Suspect]
     Active Substance: BRIGATINIB
     Indication: LUNG NEOPLASM MALIGNANT
     Dosage: 90 MILLIGRAM, QD
     Route: 065
     Dates: start: 20210319

REACTIONS (16)
  - Flatulence [Unknown]
  - Constipation [Unknown]
  - Rhinorrhoea [Unknown]
  - Abdominal distension [Unknown]
  - Dysphonia [Unknown]
  - Cough [Unknown]
  - Rash erythematous [Unknown]
  - Illness [Unknown]
  - Abdominal pain upper [Unknown]
  - Dry skin [Unknown]
  - Secretion discharge [Unknown]
  - Dizziness [Recovered/Resolved]
  - Thinking abnormal [Unknown]
  - Headache [Recovered/Resolved]
  - Drug intolerance [Unknown]
  - Vomiting [Unknown]

NARRATIVE: CASE EVENT DATE: 20210321
